FAERS Safety Report 4562876-7 (Version None)
Quarter: 2005Q1

REPORT INFORMATION
  Report Type: 
  Country: None (occurrence: None)
  Receive Date: 20050121
  Receipt Date: 20050104
  Transmission Date: 20050727
  Serious: Yes (Hospitalization)
  Sender: FDA-Public Use
  Company Number: GBS050116328

PATIENT
  Age: 64 Year

DRUGS (5)
  1. ALIMTA [Suspect]
     Indication: MESOTHELIOMA
     Dosage: 1000 MG
     Dates: start: 20041117, end: 20041118
  2. CISPLATIN [Concomitant]
  3. FOLIC ACID [Concomitant]
  4. ATENOLOL [Concomitant]
  5. NOZINAN (LEVOMEPROMAZINE HYDROCHLORIDE) [Concomitant]

REACTIONS (4)
  - NAUSEA [None]
  - NEUTROPENIC SEPSIS [None]
  - PLATELET COUNT DECREASED [None]
  - VOMITING [None]
